FAERS Safety Report 9233517 (Version 2)
Quarter: 2013Q2

REPORT INFORMATION
  Report Type: Spontaneous
  Country: CH (occurrence: CH)
  Receive Date: 20130416
  Receipt Date: 20130510
  Transmission Date: 20140414
  Serious: Yes (Death)
  Sender: FDA-Public Use
  Company Number: CH-BRISTOL-MYERS SQUIBB COMPANY-18762658

PATIENT
  Age: 83 Year
  Sex: Male
  Weight: 77 kg

DRUGS (7)
  1. YERVOY [Suspect]
     Indication: METASTATIC MALIGNANT MELANOMA
     Dosage: IN 100 ML NACL OVER 90 MINUTES
     Route: 042
     Dates: start: 20130307
  2. ALDACTONE [Concomitant]
  3. AMIODARONE [Concomitant]
  4. CALPEROS [Concomitant]
  5. CONDROSULF [Concomitant]
  6. KINZALKOMB [Concomitant]
     Dosage: 1DF=80/25MG
  7. ROCALTROL [Concomitant]

REACTIONS (1)
  - Gastric haemorrhage [Fatal]
